FAERS Safety Report 10922401 (Version 4)
Quarter: 2015Q2

REPORT INFORMATION
  Report Type: Spontaneous
  Country: TR (occurrence: TR)
  Receive Date: 20150317
  Receipt Date: 20150619
  Transmission Date: 20150821
  Serious: Yes (Other)
  Sender: FDA-Public Use
  Company Number: TR-BRISTOL-MYERS SQUIBB COMPANY-BMS-2015-013382

PATIENT
  Age: 56 Year
  Sex: Male

DRUGS (2)
  1. SPRYCEL [Suspect]
     Active Substance: DASATINIB
     Indication: PRODUCT USED FOR UNKNOWN INDICATION
     Dosage: 140 MG, UNK
     Route: 048
     Dates: start: 20150125
  2. CANDESARTAN [Concomitant]
     Active Substance: CANDESARTAN
     Indication: PRODUCT USED FOR UNKNOWN INDICATION
     Route: 048

REACTIONS (5)
  - Dizziness [Unknown]
  - Malignant neoplasm progression [Not Recovered/Not Resolved]
  - Erythema [Unknown]
  - Abdominal distension [Unknown]
  - Dyspepsia [Unknown]

NARRATIVE: CASE EVENT DATE: 20150125
